FAERS Safety Report 8204372-1 (Version None)
Quarter: 2012Q1

REPORT INFORMATION
  Report Type: 
  Country: None (occurrence: None)
  Receive Date: 20120313
  Receipt Date: 20120313
  Transmission Date: 20120608
  Serious: Yes (Life-Threatening)
  Sender: FDA-Public Use
  Company Number: None

PATIENT
  Age: 66 Year
  Sex: Female
  Weight: 82.1 kg

DRUGS (1)
  1. HURRICAINE SPRAY 20% [Suspect]
     Indication: ECHOCARDIOGRAM
     Dosage: 1 SECOND SPRAY TO THROAT
     Route: 049
     Dates: start: 20111219, end: 20111219

REACTIONS (7)
  - LETHARGY [None]
  - POST PROCEDURAL COMPLICATION [None]
  - OXYGEN SATURATION DECREASED [None]
  - PALLOR [None]
  - CYANOSIS [None]
  - HYPERTHERMIA MALIGNANT [None]
  - PULMONARY EMBOLISM [None]
